FAERS Safety Report 7429586-X (Version None)
Quarter: 2011Q2

REPORT INFORMATION
  Report Type: 
  Country: None (occurrence: None)
  Receive Date: 20110421
  Receipt Date: 20110413
  Transmission Date: 20111010
  Serious: Yes (Hospitalization)
  Sender: FDA-Public Use
  Company Number: B0599135A

PATIENT
  Sex: Female
  Weight: 69 kg

DRUGS (8)
  1. PARIET [Concomitant]
     Indication: GASTRITIS PROPHYLAXIS
     Route: 048
     Dates: start: 20090916, end: 20091209
  2. XELODA [Concomitant]
     Dosage: 3000MG PER DAY
     Route: 048
     Dates: start: 20090819, end: 20090915
  3. TYKERB [Suspect]
     Indication: BREAST CANCER
     Dosage: 1250MG PER DAY
     Route: 048
     Dates: start: 20090819, end: 20110325
  4. LOXONIN [Concomitant]
     Indication: CANCER PAIN
     Route: 048
     Dates: start: 20100203
  5. FUROSEMIDE [Concomitant]
     Indication: CARDIAC FAILURE
     Route: 048
  6. ADETPHOS [Concomitant]
     Indication: PROPHYLAXIS
     Route: 048
     Dates: start: 20090926, end: 20100201
  7. MICARDIS [Concomitant]
     Route: 048
  8. METHYLCOBAL [Concomitant]
     Indication: PROPHYLAXIS
     Route: 048
     Dates: start: 20090926, end: 20100201

REACTIONS (2)
  - SUDDEN HEARING LOSS [None]
  - DIZZINESS [None]
